FAERS Safety Report 7920406-3 (Version None)
Quarter: 2011Q4

REPORT INFORMATION
  Report Type: 
  Country: None (occurrence: None)
  Receive Date: 20111117
  Receipt Date: 20111104
  Transmission Date: 20120403
  Serious: Yes (Disabling, Other)
  Sender: FDA-Public Use
  Company Number: PHHY2011US42052

PATIENT
  Sex: Male
  Weight: 90.703 kg

DRUGS (7)
  1. LISINOPRIL [Concomitant]
     Dosage: 10 MG, UNK
  2. KLOR-CON [Concomitant]
     Dosage: 10 MG, UNK
  3. GLUCOSAMINE [Concomitant]
     Dosage: 1000 UKN, UNK
  4. FUROSEMIDE [Concomitant]
     Dosage: 20 MG, UNK
  5. IBUPROFEN [Concomitant]
     Dosage: 200 MG, UNK
  6. EXJADE [Suspect]
     Indication: IRON OVERLOAD
     Dosage: 1875 MG, (3-500 MG, 1-125 MG AND 1-250 MG TABLETS) AND TAKE BY MOUTH EVERY DAY
     Route: 048
     Dates: start: 20110207, end: 20110822
  7. DIURETICS [Concomitant]
     Dosage: UNK

REACTIONS (14)
  - HAEMATOCRIT DECREASED [None]
  - NAUSEA [None]
  - GASTROINTESTINAL HAEMORRHAGE [None]
  - DYSPNOEA [None]
  - VISION BLURRED [None]
  - DIARRHOEA [None]
  - HAEMOGLOBIN DECREASED [None]
  - ABDOMINAL DISCOMFORT [None]
  - DECREASED APPETITE [None]
  - WHITE BLOOD CELL COUNT DECREASED [None]
  - PLATELET COUNT DECREASED [None]
  - DIZZINESS [None]
  - NEPHROLITHIASIS [None]
  - DRUG INTOLERANCE [None]
